FAERS Safety Report 19054423 (Version 1)
Quarter: 2021Q1

REPORT INFORMATION
  Report Type: Other
  Country: CN (occurrence: CN)
  Receive Date: 20210325
  Receipt Date: 20210325
  Transmission Date: 20210420
  Serious: Yes (Other)
  Sender: FDA-Public Use
  Company Number: CN-ROCHE-2791485

PATIENT

DRUGS (3)
  1. TS?1 [Suspect]
     Active Substance: GIMERACIL\OTERACIL\TEGAFUR
     Indication: OESOPHAGEAL SQUAMOUS CELL CARCINOMA
     Route: 048
  2. APATINIB [Suspect]
     Active Substance: APATINIB
     Indication: OESOPHAGEAL SQUAMOUS CELL CARCINOMA
     Route: 048
  3. CAPECITABINE. [Suspect]
     Active Substance: CAPECITABINE
     Indication: OESOPHAGEAL SQUAMOUS CELL CARCINOMA
     Route: 048

REACTIONS (11)
  - Secondary hypertension [Unknown]
  - Hepatic enzyme increased [Unknown]
  - Dysphonia [Unknown]
  - Thrombocytopenia [Unknown]
  - Leukopenia [Unknown]
  - Fatigue [Unknown]
  - Diarrhoea [Unknown]
  - Proteinuria [Unknown]
  - Anaemia [Unknown]
  - Haemorrhage [Unknown]
  - Palmar-plantar erythrodysaesthesia syndrome [Unknown]
